FAERS Safety Report 9208140 (Version 4)
Quarter: 2013Q2

REPORT INFORMATION
  Report Type: Spontaneous
  Country: US (occurrence: US)
  Receive Date: 20130403
  Receipt Date: 20130527
  Transmission Date: 20140414
  Serious: Yes (Hospitalization)
  Sender: FDA-Public Use
  Company Number: US-009507513-1303USA013392

PATIENT
  Age: 61 Year
  Sex: Female

DRUGS (11)
  1. JANUVIA [Suspect]
     Indication: TYPE 2 DIABETES MELLITUS
     Dosage: 100 MG, QD
     Route: 048
     Dates: start: 20130307, end: 20130327
  2. SYNTHROID [Concomitant]
  3. SIMVASTATIN TABLETS, USP [Concomitant]
  4. LOSARTAN POTASSIUM [Concomitant]
     Route: 048
  5. GLIMEPIRIDE [Concomitant]
  6. ATENOLOL [Concomitant]
  7. METFORMIN [Concomitant]
  8. KLONOPIN [Concomitant]
  9. ASPIRIN [Concomitant]
  10. PLAVIX [Concomitant]
  11. DIAZIDE (GLICLAZIDE) [Concomitant]

REACTIONS (4)
  - Dyspepsia [Recovering/Resolving]
  - Oropharyngeal discomfort [Recovering/Resolving]
  - Flatulence [Recovering/Resolving]
  - Dysphagia [Recovering/Resolving]
